FAERS Safety Report 6745741-6 (Version None)
Quarter: 2010Q2

REPORT INFORMATION
  Report Type: 
  Country: None (occurrence: None)
  Receive Date: 20100528
  Receipt Date: 20100517
  Transmission Date: 20101027
  Serious: Yes (Other)
  Sender: FDA-Public Use
  Company Number: PHHY2010FR32159

PATIENT
  Sex: Male

DRUGS (1)
  1. GLEEVEC [Suspect]
     Dosage: 400 MG, 01 DF DAILY
     Route: 048
     Dates: start: 20091101, end: 20100224

REACTIONS (3)
  - DISTURBANCE IN ATTENTION [None]
  - FATIGUE [None]
  - FEELING DRUNK [None]
